FAERS Safety Report 5107996-3 (Version None)
Quarter: 2006Q3

REPORT INFORMATION
  Report Type: 
  Country: None (occurrence: None)
  Receive Date: 20060914
  Receipt Date: 20060908
  Transmission Date: 20061208
  Serious: Yes (Hospitalization)
  Sender: FDA-Public Use
  Company Number: 163-C5013-05110406

PATIENT
  Age: 54 Year
  Sex: Female
  Weight: 43.9989 kg

DRUGS (8)
  1. REVLIMID [Suspect]
     Indication: MULTIPLE MYELOMA
     Dosage: 25 MG, QD 3WKS OUT OF 4WKS, ORAL
     Route: 048
     Dates: start: 20051104, end: 20051125
  2. DEXAMETHASONE TAB [Suspect]
     Indication: MULTIPLE MYELOMA
     Dosage: 40 MG, DAYS 1-4, 9-12, AND 17-20, ORAL
     Route: 048
     Dates: start: 20051104
  3. NEURONTIN [Concomitant]
  4. SYNTHROID [Concomitant]
  5. POTASSIUM (POTASSIUM) [Concomitant]
  6. NEUPOGEN [Concomitant]
  7. DIPYRIDAMOLE [Concomitant]
  8. RED BLOOD CELLS [Concomitant]

REACTIONS (6)
  - CHILLS [None]
  - HAEMOGLOBIN DECREASED [None]
  - MUSCULOSKELETAL PAIN [None]
  - PLATELET COUNT DECREASED [None]
  - PYREXIA [None]
  - WHITE BLOOD CELL COUNT DECREASED [None]
